FAERS Safety Report 8162830-2 (Version None)
Quarter: 2012Q1

REPORT INFORMATION
  Report Type: 
  Country: None (occurrence: None)
  Receive Date: 20120224
  Receipt Date: 20120213
  Transmission Date: 20120608
  Serious: Yes (Other)
  Sender: FDA-Public Use
  Company Number: GB-JNJFOC-20120207492

PATIENT
  Sex: Male
  Weight: 76.2 kg

DRUGS (2)
  1. REMICADE [Suspect]
     Indication: BEHCET'S SYNDROME
     Route: 042
     Dates: start: 20090101
  2. PREDNISONE [Concomitant]
     Indication: BEHCET'S SYNDROME
     Route: 048
     Dates: start: 20090101

REACTIONS (11)
  - CARDIAC FAILURE [None]
  - VERTIGO [None]
  - VISUAL IMPAIRMENT [None]
  - EYE PAIN [None]
  - HEADACHE [None]
  - NECK PAIN [None]
  - DIZZINESS [None]
  - EAR PAIN [None]
  - PRESYNCOPE [None]
  - NAUSEA [None]
  - VISION BLURRED [None]
